FAERS Safety Report 6607921-X (Version None)
Quarter: 2010Q1

REPORT INFORMATION
  Report Type: 
  Country: None (occurrence: None)
  Receive Date: 20100301
  Receipt Date: 20100222
  Transmission Date: 20100710
  Serious: Yes (Death)
  Sender: FDA-Public Use
  Company Number: CHPA2010US03729

PATIENT
  Age: 51 Year
  Sex: Female

DRUGS (11)
  1. DIPHENHYDRAMINE (NCH) [Suspect]
  2. DOXEPIN HCL [Suspect]
  3. ETHANOL [Suspect]
  4. CLONAZEPAM [Suspect]
  5. CLONIDINE [Suspect]
  6. DRUG THERAPY NOS [Suspect]
  7. SILDENAFIL CITRATE [Suspect]
  8. SERTRALINE HCL [Suspect]
  9. DULOXETINE HYDROCHLORIDE [Suspect]
  10. OXYBUTYNIN [Suspect]
  11. ESCITALOPRAM [Suspect]

REACTIONS (1)
  - DEATH [None]
